FAERS Safety Report 13815672 (Version 1)
Quarter: 2017Q3

REPORT INFORMATION
  Report Type: Spontaneous
  Country: MA (occurrence: MA)
  Receive Date: 20170731
  Receipt Date: 20170731
  Transmission Date: 20171127
  Serious: Yes (Hospitalization, Other)
  Sender: FDA-Public Use
  Company Number: MA-MYLANLABS-2017M1045893

PATIENT

DRUGS (2)
  1. LITHIUM. [Suspect]
     Active Substance: LITHIUM
     Indication: BIPOLAR DISORDER
     Route: 065
  2. HALOPERIDOL. [Suspect]
     Active Substance: HALOPERIDOL
     Indication: MANIA
     Dosage: 6 MG/DAY
     Route: 065

REACTIONS (3)
  - Renal failure [Recovering/Resolving]
  - Neuroleptic malignant syndrome [Recovering/Resolving]
  - Toxicity to various agents [Recovering/Resolving]
